FAERS Safety Report 12101680 (Version 1)
Quarter: 2016Q1

REPORT INFORMATION
  Report Type: Spontaneous
  Country: CH (occurrence: CH)
  Receive Date: 20160222
  Receipt Date: 20160222
  Transmission Date: 20160526
  Serious: Yes (Hospitalization)
  Sender: FDA-Public Use
  Company Number: CH-MEDA-2016020047

PATIENT
  Age: 75 Year
  Sex: Male

DRUGS (10)
  1. ASPIRIN CARDIO [Concomitant]
     Active Substance: ASPIRIN
  2. BRILIQUE [Concomitant]
     Active Substance: TICAGRELOR
  3. ATORVASTATIN [Concomitant]
     Active Substance: ATORVASTATIN
  4. PANTOZOL [Suspect]
     Active Substance: PANTOPRAZOLE SODIUM
     Indication: CHRONIC GASTRITIS
     Route: 048
     Dates: start: 20151119, end: 20151220
  5. NEBILET [Concomitant]
     Active Substance: NEBIVOLOL
  6. JANUVIA [Concomitant]
     Active Substance: SITAGLIPTIN PHOSPHATE
  7. METFORMIN [Concomitant]
     Active Substance: METFORMIN HYDROCHLORIDE
  8. TOREM 10 MG [Suspect]
     Active Substance: TORSEMIDE
     Indication: CORONARY ARTERY DISEASE
     Route: 048
     Dates: start: 20151107
  9. ALDACTONE [Concomitant]
     Active Substance: SPIRONOLACTONE
  10. TRIATEC [Concomitant]
     Active Substance: RAMIPRIL

REACTIONS (6)
  - Vitamin D decreased [None]
  - Hypoparathyroidism [Unknown]
  - Blood magnesium decreased [Recovered/Resolved]
  - Hypokalaemia [Recovered/Resolved]
  - Potentiating drug interaction [Recovered/Resolved]
  - Hypocalcaemia [Recovered/Resolved]

NARRATIVE: CASE EVENT DATE: 201511
